FAERS Safety Report 7690497-6 (Version None)
Quarter: 2011Q3

REPORT INFORMATION
  Report Type: 
  Country: None (occurrence: None)
  Receive Date: 20110812
  Receipt Date: 20110802
  Transmission Date: 20111222
  Serious: Yes (Hospitalization)
  Sender: FDA-Public Use
  Company Number: 998695

PATIENT

DRUGS (4)
  1. FENTANYL CITRATE [Concomitant]
  2. VERSED [Concomitant]
  3. DEXTROSE 10% AND SODIUM CHLORIDE 0.45% [Suspect]
     Indication: BIOPSY
     Dosage: INTRAVENOUS
     Route: 042
     Dates: start: 20110726
  4. DEXTROSE 10% AND SODIUM CHLORIDE 0.45% [Suspect]
     Indication: OESOPHAGOGASTRODUODENOSCOPY
     Dosage: INTRAVENOUS
     Route: 042
     Dates: start: 20110726

REACTIONS (2)
  - CHILLS [None]
  - PYREXIA [None]
